FAERS Safety Report 15055520 (Version 1)
Quarter: 2018Q2

REPORT INFORMATION
  Report Type: Spontaneous
  Country: US (occurrence: US)
  Receive Date: 20180603
  Receipt Date: 20180603
  Transmission Date: 20180711
  Serious: Yes (Other)
  Sender: FDA-Public Use
  Company Number: None

PATIENT
  Age: 8 Year
  Sex: Female

DRUGS (3)
  1. PROBIOTIC [Concomitant]
     Active Substance: PROBIOTICS NOS
  2. MONTELUKAST SOD 5 MG TAB CHEW [Suspect]
     Active Substance: MONTELUKAST SODIUM
     Indication: SLEEP APNOEA SYNDROME
     Dosage: ?          QUANTITY:1 TABLET(S);?
     Route: 048
     Dates: start: 20180101, end: 20180603
  3. MULTIVITAMIN [Concomitant]
     Active Substance: VITAMINS

REACTIONS (4)
  - Anger [None]
  - Irritability [None]
  - Abnormal behaviour [None]
  - Crying [None]

NARRATIVE: CASE EVENT DATE: 20180601
